FAERS Safety Report 8521098-5 (Version None)
Quarter: 2012Q3

REPORT INFORMATION
  Report Type: 
  Country: None (occurrence: None)
  Receive Date: 20120719
  Receipt Date: 20120713
  Transmission Date: 20120928
  Serious: Yes (Hospitalization, Other)
  Sender: FDA-Public Use
  Company Number: US-009507513-2012SP033709

PATIENT

DRUGS (4)
  1. PEGASYS [Concomitant]
     Indication: HEPATITIS C
     Dosage: 180 A?G, UNKNOWN
     Route: 065
     Dates: start: 20120106
  2. PEGASYS [Concomitant]
     Dosage: 135 A?G, UNKNOWN
     Route: 065
  3. RIBAVIRIN [Suspect]
     Indication: HEPATITIS C
     Dosage: UNK UNK, UNKNOWN
     Route: 065
     Dates: start: 20120106
  4. VICTRELIS [Suspect]
     Indication: HEPATITIS C
     Dosage: UNK UNK, UNKNOWN
     Route: 065
     Dates: start: 20120204

REACTIONS (3)
  - WHITE BLOOD CELL COUNT DECREASED [None]
  - RED BLOOD CELL COUNT DECREASED [None]
  - ANXIETY [None]
